FAERS Safety Report 10526476 (Version 1)
Quarter: 2014Q4

REPORT INFORMATION
  Report Type: Spontaneous
  Country: JP (occurrence: JP)
  Receive Date: 20141020
  Receipt Date: 20141020
  Transmission Date: 20150528
  Serious: Yes (Death, Hospitalization, Other)
  Sender: FDA-Public Use
  Company Number: JP-ABBVIE-14K-087-1296128-00

PATIENT
  Age: 76 Year
  Sex: Male

DRUGS (5)
  1. HUMIRA [Suspect]
     Active Substance: ADALIMUMAB
     Indication: RHEUMATOID ARTHRITIS
     Route: 058
  2. PREDONINE [Concomitant]
     Active Substance: PREDNISOLONE\PREDNISOLONE ACETATE\PREDNISOLONE SODIUM SUCCINATE
     Route: 048
  3. PARIET [Concomitant]
     Active Substance: RABEPRAZOLE SODIUM
     Indication: PRODUCT USED FOR UNKNOWN INDICATION
     Route: 048
  4. METHOTREXATE SODIUM. [Suspect]
     Active Substance: METHOTREXATE SODIUM
     Indication: RHEUMATOID ARTHRITIS
     Route: 048
  5. PREDONINE [Concomitant]
     Active Substance: PREDNISOLONE\PREDNISOLONE ACETATE\PREDNISOLONE SODIUM SUCCINATE
     Indication: RHEUMATOID ARTHRITIS
     Route: 048
     Dates: start: 20130628

REACTIONS (17)
  - Pneumonia [Fatal]
  - Ascites [Unknown]
  - Musculoskeletal pain [Unknown]
  - Herpes zoster [Recovering/Resolving]
  - Polymyalgia rheumatica [Unknown]
  - Lung disorder [Unknown]
  - Vomiting [Unknown]
  - Hypophagia [Unknown]
  - Nausea [Unknown]
  - Cough [Unknown]
  - Lymphadenopathy [Unknown]
  - C-reactive protein increased [Unknown]
  - Lymphoma [Fatal]
  - Lymphoproliferative disorder [Unknown]
  - Bone marrow tumour cell infiltration [Unknown]
  - General physical health deterioration [Unknown]
  - B-cell lymphoma [Unknown]

NARRATIVE: CASE EVENT DATE: 20121102
